FAERS Safety Report 25624222 (Version 1)
Quarter: 2025Q3

REPORT INFORMATION
  Report Type: Spontaneous
  Country: US (occurrence: US)
  Receive Date: 20250730
  Receipt Date: 20250730
  Transmission Date: 20251020
  Serious: No
  Sender: SANOFI AVENTIS
  Company Number: US-SA-2025SA220155

PATIENT
  Sex: Male

DRUGS (7)
  1. DUPIXENT [Suspect]
     Active Substance: DUPILUMAB
     Indication: Chronic obstructive pulmonary disease
     Dosage: 300 MG, QOW
     Route: 058
     Dates: start: 20250725
  2. ANORO ELLIPTA [Concomitant]
     Active Substance: UMECLIDINIUM BROMIDE\VILANTEROL TRIFENATATE
  3. BUDESONIDE [Concomitant]
     Active Substance: BUDESONIDE
  4. LISINOPRIL H [Concomitant]
  5. MONTELUKAST [Concomitant]
     Active Substance: MONTELUKAST
  6. PREDNISONE [Concomitant]
     Active Substance: PREDNISONE
  7. XOPENEX HFA [Concomitant]
     Active Substance: LEVALBUTEROL TARTRATE

REACTIONS (3)
  - Diarrhoea [Unknown]
  - Epigastric discomfort [Unknown]
  - Pain in jaw [Unknown]
